FAERS Safety Report 10867090 (Version 5)
Quarter: 2015Q1

REPORT INFORMATION
  Report Type: Report from Study
  Country: SG (occurrence: SG)
  Receive Date: 20150225
  Receipt Date: 20150325
  Transmission Date: 20150721
  Serious: Yes (Death, Hospitalization, Disabling)
  Sender: FDA-Public Use
  Company Number: SG-EISAI MEDICAL RESEARCH-EC-2015-004313

PATIENT
  Age: 69 Year
  Sex: Male
  Weight: 55.3 kg

DRUGS (4)
  1. LENVATINIB [Suspect]
     Active Substance: LENVATINIB
     Indication: LUNG ADENOCARCINOMA
     Route: 048
     Dates: start: 20141223, end: 20150203
  2. LENVATINIB [Suspect]
     Active Substance: LENVATINIB
     Route: 048
     Dates: start: 20150204, end: 20150217
  3. OMEPRAZOLE. [Concomitant]
     Active Substance: OMEPRAZOLE
  4. TOLBUTAMIDE. [Concomitant]
     Active Substance: TOLBUTAMIDE

REACTIONS (2)
  - Pneumonia [Fatal]
  - Hyponatraemia [Recovered/Resolved]

NARRATIVE: CASE EVENT DATE: 20150220
